FAERS Safety Report 6576919-2 (Version None)
Quarter: 2010Q1

REPORT INFORMATION
  Report Type: 
  Country: None (occurrence: None)
  Receive Date: 20100210
  Receipt Date: 20100203
  Transmission Date: 20100710
  Serious: Yes (Life-Threatening, Hospitalization)
  Sender: FDA-Public Use
  Company Number: FR-ELI_LILLY_AND_COMPANY-FR201002000772

PATIENT
  Age: 42 Year
  Sex: Female

DRUGS (4)
  1. CYMBALTA [Suspect]
     Indication: DEPRESSION
     Dosage: 60 MG, DAILY (1/D)
     Route: 048
     Dates: start: 20100126
  2. STILNOX [Concomitant]
     Dosage: UNK, UNKNOWN
  3. SERESTA [Concomitant]
     Dosage: UNK, UNKNOWN
  4. ALPRAZOLAM [Concomitant]
     Dosage: UNK, UNKNOWN

REACTIONS (1)
  - ANGIOEDEMA [None]
